FAERS Safety Report 15684833 (Version 2)
Quarter: 2019Q1

REPORT INFORMATION
  Report Type: Spontaneous
  Country: DE (occurrence: DE)
  Receive Date: 20181204
  Receipt Date: 20190328
  Transmission Date: 20190417
  Serious: Yes (Life-Threatening, Hospitalization, Other)
  Sender: FDA-Public Use
  Company Number: DE-PFIZER INC-2018482008

PATIENT
  Age: 70 Year
  Sex: Female

DRUGS (2)
  1. NITRAZEPAM [Suspect]
     Active Substance: NITRAZEPAM
     Dosage: 3X20MG
  2. LYRICA [Suspect]
     Active Substance: PREGABALIN
     Dosage: 150MG EARLY AND NOON 75MG AND IN THE EVENING 150MG
     Dates: start: 2005

REACTIONS (18)
  - Apparent death [Unknown]
  - Headache [Unknown]
  - Language disorder [Unknown]
  - Hypotonia [Unknown]
  - Weight increased [Unknown]
  - Myocardial infarction [Unknown]
  - Heart rate increased [Unknown]
  - Troponin increased [Unknown]
  - Confusional state [Unknown]
  - Pulmonary oedema [Unknown]
  - Blood pressure systolic increased [Recovered/Resolved]
  - Agitation [Unknown]
  - Hypotension [Unknown]
  - Mitral valve disease [Unknown]
  - Hypokalaemia [Recovered/Resolved]
  - Hypertension [Unknown]
  - Catheterisation cardiac abnormal [Unknown]
  - Fear [Unknown]

NARRATIVE: CASE EVENT DATE: 2010
